FAERS Safety Report 23822080 (Version 2)
Quarter: 2024Q2

REPORT INFORMATION
  Report Type: Spontaneous
  Country: HR (occurrence: HR)
  Receive Date: 20240506
  Receipt Date: 20240524
  Transmission Date: 20240716
  Serious: Yes (Other)
  Sender: FDA-Public Use
  Company Number: HR-SUN PHARMACEUTICAL INDUSTRIES LTD-2024R1-444413

PATIENT
  Age: 51 Year
  Sex: Male

DRUGS (4)
  1. ZOLPIDEM [Suspect]
     Active Substance: ZOLPIDEM TARTRATE
     Indication: Aggression
     Dosage: 500 MILLIGRAM, DAILY (DIVIDED INTO 30 MG DOSES)
     Route: 065
     Dates: start: 2018
  2. ZOLPIDEM [Suspect]
     Active Substance: ZOLPIDEM TARTRATE
     Dosage: UNK
     Route: 065
     Dates: start: 2015
  3. ZOLPIDEM [Suspect]
     Active Substance: ZOLPIDEM TARTRATE
     Dosage: 80 MILLIGRAM, DAILY
     Route: 065
  4. ZOLPIDEM [Suspect]
     Active Substance: ZOLPIDEM TARTRATE
     Dosage: 30 MILLIGRAM
     Route: 065

REACTIONS (2)
  - Drug dependence [Unknown]
  - Euphoric mood [Recovered/Resolved]
